FAERS Safety Report 6799656-8 (Version None)
Quarter: 2010Q2

REPORT INFORMATION
  Report Type: 
  Country: None (occurrence: None)
  Receive Date: 20100624
  Receipt Date: 20100611
  Transmission Date: 20101027
  Serious: Yes (Death, Hospitalization)
  Sender: FDA-Public Use
  Company Number: 2010SP001665

PATIENT
  Age: 73 Year
  Sex: Male

DRUGS (2)
  1. XOPENEX [Suspect]
     Indication: DYSPNOEA
     Dosage: ; INHALATION
     Route: 055
     Dates: start: 20100301, end: 20100301
  2. ANTIHYPERTENSIVES [Concomitant]

REACTIONS (4)
  - CONDITION AGGRAVATED [None]
  - DRUG ADMINISTRATION ERROR [None]
  - DYSPNOEA [None]
  - TREATMENT NONCOMPLIANCE [None]
